FAERS Safety Report 8905651 (Version 1)
Quarter: 2012Q4

REPORT INFORMATION
  Report Type: 
  Country: US (occurrence: US)
  Receive Date: 20121113
  Receipt Date: 20121113
  Transmission Date: 20130627
  Serious: Yes (Hospitalization)
  Sender: FDA-Public Use
  Company Number: US-B.I. PHARMACEUTICALS,INC./RIDGEFIELD-2012-BP-27516BP

PATIENT
  Sex: Female

DRUGS (8)
  1. SPIRIVA [Suspect]
     Indication: CHRONIC OBSTRUCTIVE PULMONARY DISEASE
     Dosage: 18 mcg
     Route: 055
     Dates: start: 201207
  2. ALPRAZOLAM [Concomitant]
     Indication: ANXIETY
  3. SYMBICORT [Concomitant]
     Indication: CHRONIC OBSTRUCTIVE PULMONARY DISEASE
  4. OXYCODONE [Concomitant]
     Indication: PAIN
  5. NEXIUM [Concomitant]
     Indication: GASTROOESOPHAGEAL REFLUX DISEASE
  6. MORPHINE [Concomitant]
     Indication: PAIN
  7. PLAVIX [Concomitant]
  8. NEURONTIN [Concomitant]
     Indication: PAIN

REACTIONS (2)
  - Arthritis bacterial [Recovered/Resolved]
  - Bronchitis [Recovered/Resolved]
